FAERS Safety Report 7985747-2 (Version None)
Quarter: 2011Q4

REPORT INFORMATION
  Report Type: 
  Country: None (occurrence: None)
  Receive Date: 20111007
  Receipt Date: 20110901
  Transmission Date: 20120403
  Serious: No
  Sender: FDA-Public Use
  Company Number: 2011HGS-002530

PATIENT
  Age: 43 Year
  Sex: Female
  Weight: 117.4816 kg

DRUGS (3)
  1. BENLYSTA [Suspect]
     Indication: SYSTEMIC LUPUS ERYTHEMATOSUS
     Dosage: INTRAVENOUS DRIP
     Route: 041
     Dates: start: 20110831
  2. PLAQUENIL (HYDROXYCHLOROQUINE SULFAET) (HYDROXYCHLOROQUINE SULFATE) [Concomitant]
  3. PREDNISONE [Concomitant]

REACTIONS (8)
  - DIARRHOEA [None]
  - PARAESTHESIA [None]
  - DRY MOUTH [None]
  - LYMPHADENOPATHY [None]
  - THROAT TIGHTNESS [None]
  - PHARYNGEAL OEDEMA [None]
  - DYSPHAGIA [None]
  - LOWER RESPIRATORY TRACT INFECTION [None]
